FAERS Safety Report 10197259 (Version 1)
Quarter: 2014Q2

REPORT INFORMATION
  Report Type: Spontaneous
  Country: US (occurrence: None)
  Receive Date: 20140523
  Receipt Date: 20140523
  Transmission Date: 20141212
  Serious: Yes (Other)
  Sender: FDA-Public Use
  Company Number: None

PATIENT
  Age: 44 Year
  Sex: Female
  Weight: 70.76 kg

DRUGS (2)
  1. LYRICA [Suspect]
     Indication: CERVICAL RADICULOPATHY
     Dosage: 75MG, TWICE DAILY, TAKEN BY MOUTH
     Route: 048
     Dates: start: 20140317, end: 20140521
  2. LYRICA [Suspect]
     Indication: NEURITIS
     Dosage: 75MG, TWICE DAILY, TAKEN BY MOUTH
     Route: 048
     Dates: start: 20140317, end: 20140521

REACTIONS (5)
  - Narcolepsy [None]
  - Memory impairment [None]
  - Weight increased [None]
  - Euphoric mood [None]
  - Mood altered [None]
